FAERS Safety Report 22028775 (Version 1)
Quarter: 2023Q1

REPORT INFORMATION
  Report Type: Spontaneous
  Country: CN (occurrence: CN)
  Receive Date: 20230223
  Receipt Date: 20230223
  Transmission Date: 20230418
  Serious: Yes (Other)
  Sender: FDA-Public Use
  Company Number: CN-009507513-2302CHN005234

PATIENT
  Age: 65 Year
  Sex: Female
  Weight: 44 kg

DRUGS (1)
  1. INVANZ [Suspect]
     Active Substance: ERTAPENEM SODIUM
     Dosage: 0.5 G, QD
     Route: 041
     Dates: start: 20220629, end: 20220711

REACTIONS (3)
  - Delirium [Recovering/Resolving]
  - Chronic kidney disease [Unknown]
  - Infection [Unknown]

NARRATIVE: CASE EVENT DATE: 20220706
